FAERS Safety Report 8512529-5 (Version None)
Quarter: 2012Q2

REPORT INFORMATION
  Report Type: 
  Country: None (occurrence: None)
  Receive Date: 20120406
  Receipt Date: 20120228
  Transmission Date: 20120825
  Serious: Yes (Life-Threatening, Hospitalization, Other)
  Sender: FDA-Public Use
  Company Number: US-CYPR-2012-000009

PATIENT
  Sex: Male
  Weight: 73.9363 kg

DRUGS (10)
  1. PEPCID [Concomitant]
  2. CYPHER STENT [Concomitant]
  3. METFORMIN HYDROCHLORIDE [Concomitant]
  4. ASPIRIN [Suspect]
     Indication: CORONARY ARTERY DISEASE
     Dosage: (325 MG QD ORAL), (81 MG QD ORAL), (325 MG QD ORAL)
     Route: 048
     Dates: start: 20100225, end: 20100801
  5. ASPIRIN [Suspect]
     Indication: CORONARY ARTERY DISEASE
     Dosage: (325 MG QD ORAL), (81 MG QD ORAL), (325 MG QD ORAL)
     Route: 048
     Dates: start: 20100802, end: 20120224
  6. ASPIRIN [Suspect]
     Indication: CORONARY ARTERY DISEASE
     Dosage: (325 MG QD ORAL), (81 MG QD ORAL), (325 MG QD ORAL)
     Route: 048
     Dates: start: 20120201
  7. TOPROL-XL [Concomitant]
  8. CRESTOR [Concomitant]
  9. LISINOPRIL [Concomitant]
  10. CLOPIDOGREL [Suspect]
     Indication: ANTIPLATELET THERAPY
     Dosage: (75 MG QD ORAL)
     Route: 048
     Dates: start: 20110222, end: 20120224

REACTIONS (1)
  - MYOCARDIAL INFARCTION [None]
